FAERS Safety Report 8157128-2 (Version None)
Quarter: 2012Q1

REPORT INFORMATION
  Report Type: 
  Country: None (occurrence: None)
  Receive Date: 20120210
  Receipt Date: 20120202
  Transmission Date: 20120608
  Serious: Yes (Hospitalization, Other)
  Sender: FDA-Public Use
  Company Number: 2011029059

PATIENT
  Age: 9 Year
  Sex: Female
  Weight: 36.9682 kg

DRUGS (22)
  1. KLONOPIN [Concomitant]
  2. CERON (CERONAPRIL) [Concomitant]
  3. ROXICET [Concomitant]
  4. CETIRIZINE [Concomitant]
  5. LOVENOX [Concomitant]
  6. RUFINAMIDE (RUFINAMIDE) [Concomitant]
  7. PHENOBARBITAL TAB [Concomitant]
  8. KEPPRA [Concomitant]
  9. CALCIUM CARBONATE [Concomitant]
  10. HIZENTRA [Suspect]
     Indication: IMMUNODEFICIENCY COMMON VARIABLE
     Dosage: SEE IMAGE
     Route: 058
     Dates: start: 20110501
  11. HIZENTRA [Suspect]
     Indication: IMMUNODEFICIENCY COMMON VARIABLE
     Dosage: SEE IMAGE
     Route: 058
     Dates: start: 20110411
  12. HIZENTRA [Suspect]
     Indication: IMMUNODEFICIENCY COMMON VARIABLE
     Dosage: SEE IMAGE
     Route: 058
     Dates: start: 20110815, end: 20110815
  13. DIAZEPAM [Concomitant]
  14. SINUPRET (SINUPRET) [Concomitant]
  15. LORAZEPAM [Concomitant]
  16. NEXIUM [Concomitant]
  17. NEURONTIN [Concomitant]
  18. GLYCOPYRROLATE [Concomitant]
  19. DIMETAPP (DIMETAPP /00127601/) [Concomitant]
  20. LORTAB (CHLORPHENAMINE MALEATE) [Concomitant]
  21. MIRAZLAX (MACROGOL) [Concomitant]
  22. DIASTAT (DIASTAT /01384601/) [Concomitant]

REACTIONS (5)
  - SKIN INFECTION [None]
  - OTITIS MEDIA [None]
  - PAIN [None]
  - PNEUMONIA [None]
  - FEEDING TUBE COMPLICATION [None]
